FAERS Safety Report 24827673 (Version 1)
Quarter: 2025Q1

REPORT INFORMATION
  Report Type: Spontaneous
  Country: CH (occurrence: CH)
  Receive Date: 20250109
  Receipt Date: 20250109
  Transmission Date: 20250408
  Serious: No
  Sender: JAZZ
  Company Number: CH-PHARMAMAR-2024PM000866

PATIENT
  Age: 64 Year
  Sex: Male

DRUGS (1)
  1. ZEPZELCA [Suspect]
     Active Substance: LURBINECTEDIN
     Indication: Small cell lung cancer
     Dosage: 3.2 MILLIGRAM/SQ. METER, Q3W
     Route: 042

REACTIONS (7)
  - Cough [Unknown]
  - Nausea [Recovering/Resolving]
  - Vomiting [Unknown]
  - Pyrexia [Unknown]
  - Myalgia [Unknown]
  - Fatigue [Unknown]
  - Gastrointestinal infection [Unknown]
